FAERS Safety Report 26207620 (Version 1)
Quarter: 2025Q4

REPORT INFORMATION
  Report Type: Report from Study
  Country: US (occurrence: US)
  Receive Date: 20251229
  Receipt Date: 20251229
  Transmission Date: 20260117
  Serious: Yes (Other)
  Sender: TAKEDA
  Company Number: US-TAKEDA-2018TUS019115

PATIENT
  Age: 16 Year
  Sex: Male
  Weight: 84.354 kg

DRUGS (12)
  1. VEDOLIZUMAB [Suspect]
     Active Substance: VEDOLIZUMAB
     Indication: Colitis ulcerative
     Dosage: UNK
  2. VEDOLIZUMAB [Suspect]
     Active Substance: VEDOLIZUMAB
     Indication: Colitis ulcerative
     Dosage: 108 MILLIGRAM, Q2WEEKS
  3. VEDOLIZUMAB [Suspect]
     Active Substance: VEDOLIZUMAB
  4. RANITIDINE [Concomitant]
     Active Substance: RANITIDINE
     Indication: Gastrooesophageal reflux disease
     Dosage: 150 MG, QD
     Dates: start: 201802
  5. RANITIDINE [Concomitant]
     Active Substance: RANITIDINE
     Dosage: UNK UNK, BID
  6. IRON [Concomitant]
     Active Substance: IRON
     Indication: Supplementation therapy
     Dosage: 65 MG, QD
     Dates: start: 201802
  7. IRON [Concomitant]
     Active Substance: IRON
     Dosage: UNK, QD
  8. VITAMIN D NOS [Concomitant]
     Active Substance: CHOLECALCIFEROL\ERGOCALCIFEROL
     Dosage: UNK UNK, QD
     Dates: start: 201802
  9. VITAMIN D NOS [Concomitant]
     Active Substance: CHOLECALCIFEROL\ERGOCALCIFEROL
     Dosage: UNK
  10. MELATONIN [Concomitant]
     Active Substance: MELATONIN
     Indication: Sleep disorder
     Dosage: UNK
  11. SACCHAROMYCES CEREVISIAE [Concomitant]
     Active Substance: SACCHAROMYCES CEREVISIAE
     Indication: Supplementation therapy
     Dosage: UNK UNK, BID
     Dates: end: 2018
  12. SACCHAROMYCES CEREVISIAE [Concomitant]
     Active Substance: SACCHAROMYCES CEREVISIAE
     Dosage: UNK UNK, QOD
     Dates: start: 2018

REACTIONS (2)
  - Clostridium difficile infection [Recovering/Resolving]
  - Diarrhoea [Unknown]
